FAERS Safety Report 6124552-9 (Version None)
Quarter: 2009Q1

REPORT INFORMATION
  Report Type: 
  Country: None (occurrence: None)
  Receive Date: 20090319
  Receipt Date: 20090317
  Transmission Date: 20090719
  Serious: Yes (Hospitalization)
  Sender: FDA-Public Use
  Company Number: US-MERCK-0903USA02893

PATIENT
  Sex: Female

DRUGS (2)
  1. SINGULAIR [Suspect]
     Indication: ASTHMA
     Route: 048
     Dates: start: 20050101, end: 20090301
  2. ZYFLO CR [Suspect]
     Indication: ASTHMA
     Route: 065
     Dates: end: 20090301

REACTIONS (6)
  - ANGIOEDEMA [None]
  - ASTHMA [None]
  - LARYNGOSPASM [None]
  - PRURITUS [None]
  - RASH [None]
  - URTICARIA [None]
